FAERS Safety Report 6013862-1 (Version None)
Quarter: 2008Q4

REPORT INFORMATION
  Report Type: 
  Country: None (occurrence: None)
  Receive Date: 20081216
  Receipt Date: 20071114
  Transmission Date: 20090506
  Serious: Yes (Hospitalization, Other)
  Sender: FDA-Public Use
  Company Number: US-WYE-H01328407

PATIENT
  Age: 86 Year
  Sex: Female
  Weight: 61.29 kg

DRUGS (10)
  1. EFFEXOR XR [Suspect]
     Indication: ANXIETY
     Dosage: ORAL ; 37.5 MG 1X PER 1 DAY, ORAL
     Route: 048
     Dates: start: 20071107, end: 20071111
  2. EFFEXOR XR [Suspect]
     Indication: ANXIETY
     Dosage: ORAL ; 37.5 MG 1X PER 1 DAY, ORAL
     Route: 048
     Dates: start: 20071207
  3. REMERON [Concomitant]
  4. OXYBUTYNIN CHLORIDE [Concomitant]
  5. LOTENSIN HCT (BENAZEPRIL HYDROCHLORIDE/HYDROCHLOROTHIAZIDE) [Concomitant]
  6. NEXIUM [Concomitant]
  7. LORAZEPAM [Concomitant]
  8. MECLIZINE [Concomitant]
  9. PREMARIN [Concomitant]
  10. NEXIUM [Concomitant]

REACTIONS (2)
  - INAPPROPRIATE ANTIDIURETIC HORMONE SECRETION [None]
  - VOMITING [None]
